FAERS Safety Report 16362259 (Version 1)
Quarter: 2019Q3

REPORT INFORMATION
  Report Type: Spontaneous
  Country: US (occurrence: US)
  Receive Date: 20190526
  Receipt Date: 20190526
  Transmission Date: 20191004
  Serious: Yes (Other)
  Sender: FDA-Public Use
  Company Number: None

PATIENT
  Age: 75 Year
  Sex: Male
  Weight: 87.75 kg

DRUGS (3)
  1. PREDNISONE TABLET [Suspect]
     Active Substance: PREDNISONE
     Indication: POLYNEUROPATHY
  2. TRAMADOL 100 MG [Concomitant]
     Active Substance: TRAMADOL
  3. LISINOPRIL 20 MG [Concomitant]
     Active Substance: LISINOPRIL

REACTIONS (1)
  - Tongue discomfort [None]

NARRATIVE: CASE EVENT DATE: 20190506
